FAERS Safety Report 8189681-7 (Version None)
Quarter: 2012Q1

REPORT INFORMATION
  Report Type: 
  Country: None (occurrence: None)
  Receive Date: 20120307
  Receipt Date: 20120227
  Transmission Date: 20120608
  Serious: Yes (Other)
  Sender: FDA-Public Use
  Company Number: CA-COVIDIEN/TYCO HEALTHCARE/MALLINCKRODT-T201200805

PATIENT
  Age: 36 Year
  Sex: Female

DRUGS (1)
  1. OCTREOSCAN [Suspect]
     Indication: PRODUCT USED FOR UNKNOWN INDICATION
     Dosage: 222 MBQ, UNK
     Route: 065

REACTIONS (4)
  - FLUSHING [None]
  - ERYTHEMA [None]
  - HYPERHIDROSIS [None]
  - NAUSEA [None]
